FAERS Safety Report 5994846-6 (Version None)
Quarter: 2008Q4

REPORT INFORMATION
  Report Type: 
  Country: None (occurrence: None)
  Receive Date: 20081212
  Receipt Date: 20080916
  Transmission Date: 20090506
  Serious: No
  Sender: FDA-Public Use
  Company Number: US-ABBOTT-08P-163-0476597-00

PATIENT
  Sex: Female
  Weight: 53.118 kg

DRUGS (9)
  1. HUMIRA [Suspect]
     Indication: CROHN'S DISEASE
     Route: 058
     Dates: start: 20080902, end: 20080902
  2. HUMIRA [Suspect]
     Indication: ANKYLOSING SPONDYLITIS
     Route: 058
     Dates: start: 20080917, end: 20080917
  3. HUMIRA [Suspect]
     Route: 058
  4. MESALAMINE [Concomitant]
     Indication: CROHN'S DISEASE
  5. BUDESONIDE [Concomitant]
     Indication: CROHN'S DISEASE
  6. LIMBREL [Concomitant]
     Indication: MUSCULOSKELETAL STIFFNESS
  7. CYANOCOBALAMIN-TANNIN COMPLEX [Concomitant]
     Indication: FATIGUE
     Route: 050
  8. CYANOCOBALAMIN-TANNIN COMPLEX [Concomitant]
     Indication: POOR QUALITY SLEEP
  9. ERGOCALCIFEROL [Concomitant]
     Indication: DRUG USE FOR UNKNOWN INDICATION

REACTIONS (3)
  - ARTHRALGIA [None]
  - INJECTION SITE HAEMATOMA [None]
  - MUSCULOSKELETAL STIFFNESS [None]
